FAERS Safety Report 6976791-2 (Version None)
Quarter: 2010Q3

REPORT INFORMATION
  Report Type: 
  Country: None (occurrence: None)
  Receive Date: 20100910
  Receipt Date: 20090501
  Transmission Date: 20110219
  Serious: No
  Sender: FDA-Public Use
  Company Number: US-WYE-H09187509

PATIENT
  Sex: Female

DRUGS (7)
  1. PRISTIQ [Suspect]
     Indication: ANXIETY
     Route: 048
     Dates: start: 20090423
  2. PREDNISONE [Concomitant]
  3. COREG [Concomitant]
  4. PLAVIX [Concomitant]
  5. NORVASC [Concomitant]
  6. TRAMADOL HCL [Concomitant]
  7. ASPIRIN [Concomitant]

REACTIONS (2)
  - CHEST DISCOMFORT [None]
  - HEART RATE IRREGULAR [None]
